FAERS Safety Report 7509745-8 (Version None)
Quarter: 2011Q2

REPORT INFORMATION
  Report Type: 
  Country: None (occurrence: None)
  Receive Date: 20110527
  Receipt Date: 20110523
  Transmission Date: 20111010
  Serious: Yes (Life-Threatening, Other)
  Sender: FDA-Public Use
  Company Number: US-ASTRAZENECA-2011SE31634

PATIENT
  Sex: Male

DRUGS (3)
  1. CLONAZEPAM [Concomitant]
  2. HYDROXYZINE HCL [Concomitant]
  3. SEROQUEL [Suspect]
     Dosage: 400 MG EVERY AM AND 600 MG EVERY PM
     Route: 048

REACTIONS (4)
  - SUICIDE ATTEMPT [None]
  - BLINDNESS [None]
  - MYDRIASIS [None]
  - AMBLYOPIA [None]
